FAERS Safety Report 12310553 (Version 4)
Quarter: 2016Q2

REPORT INFORMATION
  Report Type: Report from Study
  Country: US (occurrence: US)
  Receive Date: 20160427
  Receipt Date: 20160624
  Transmission Date: 20160815
  Serious: Yes (Hospitalization)
  Sender: FDA-Public Use
  Company Number: US-JNJFOC-20160421879

PATIENT
  Age: 39 Year
  Sex: Female
  Weight: 97.52 kg

DRUGS (2)
  1. USTEKINUMAB [Suspect]
     Active Substance: USTEKINUMAB
     Indication: PSORIASIS
     Route: 058
     Dates: start: 20121212, end: 20121212
  2. USTEKINUMAB [Suspect]
     Active Substance: USTEKINUMAB
     Indication: PSORIASIS
     Route: 058
     Dates: start: 20110919, end: 201206

REACTIONS (2)
  - Uterine leiomyoma [Recovered/Resolved]
  - Coeliac disease [Unknown]

NARRATIVE: CASE EVENT DATE: 20141001
